FAERS Safety Report 4416918-X (Version None)
Quarter: 2004Q3

REPORT INFORMATION
  Report Type: 
  Country: None (occurrence: None)
  Receive Date: 20040802
  Receipt Date: 20040728
  Transmission Date: 20050211
  Serious: Yes (Other)
  Sender: FDA-Public Use
  Company Number: 139659USA

PATIENT
  Age: 52 Year
  Sex: Female

DRUGS (5)
  1. COPAXONE [Suspect]
     Indication: MULTIPLE SCLEROSIS
  2. NASACORT [Concomitant]
  3. ALBUTEROL [Concomitant]
  4. ESTRACE [Concomitant]
  5. ZYRTEC [Concomitant]

REACTIONS (3)
  - INJECTION SITE CELLULITIS [None]
  - INJECTION SITE NECROSIS [None]
  - SKIN NECROSIS [None]
